FAERS Safety Report 7500625-0 (Version None)
Quarter: 2011Q2

REPORT INFORMATION
  Report Type: 
  Country: None (occurrence: None)
  Receive Date: 20110524
  Receipt Date: 20100809
  Transmission Date: 20111010
  Serious: No
  Sender: FDA-Public Use
  Company Number: US-NOVEN-ALL1-2010-03931

PATIENT

DRUGS (4)
  1. DAYTRANA [Suspect]
     Dosage: 10 MG, 1X/DAY:QD
     Route: 062
     Dates: start: 20100715, end: 20100717
  2. HYDROXIZINE [Concomitant]
     Dosage: UNK, AS REQ'D (10MG/5ML, 5-10 ML @ BEDTIME)
     Route: 048
     Dates: start: 20090801
  3. DAYTRANA [Suspect]
     Dosage: 20 MG, 1X/DAY:QD, (TWO 10 MG PATCHES)
     Route: 062
     Dates: start: 20100718, end: 20100720
  4. DAYTRANA [Suspect]
     Dosage: 20 MG, 1X/DAY:QD
     Route: 062
     Dates: start: 20100721

REACTIONS (5)
  - ACCIDENTAL EXPOSURE [None]
  - PRODUCT QUALITY ISSUE [None]
  - DRUG INEFFECTIVE [None]
  - DRUG ADMINISTERED AT INAPPROPRIATE SITE [None]
  - NO ADVERSE EVENT [None]
